FAERS Safety Report 5022234-8 (Version None)
Quarter: 2006Q2

REPORT INFORMATION
  Report Type: 
  Country: None (occurrence: None)
  Receive Date: 20060501
  Receipt Date: 20060306
  Transmission Date: 20061013
  Serious: No
  Sender: FDA-Public Use
  Company Number: ACETADOTE_011

PATIENT
  Age: 41 Year
  Sex: Female
  Weight: 80 kg

DRUGS (1)
  1. ACETADOTE [Suspect]
     Indication: OVERDOSE
     Dosage: 150 MG/K IV
     Route: 042
     Dates: start: 20060305

REACTIONS (1)
  - INFUSION SITE IRRITATION [None]
